FAERS Safety Report 9364455 (Version 1)
Quarter: 2013Q2

REPORT INFORMATION
  Report Type: Spontaneous
  Country: US (occurrence: US)
  Receive Date: 20130624
  Receipt Date: 20130624
  Transmission Date: 20140414
  Serious: Yes (Hospitalization, Other)
  Sender: FDA-Public Use
  Company Number: US-TEVA-413683USA

PATIENT
  Age: 52 Year
  Sex: Male

DRUGS (5)
  1. WARFARIN [Suspect]
     Indication: ANTICOAGULANT THERAPY
     Route: 065
  2. PROFILNINE SD [Suspect]
     Indication: CEREBRAL HAEMORRHAGE
     Dosage: 50 UNITS/KG AT 10 ML/MIN
     Route: 042
  3. PROFILNINE SD [Suspect]
     Indication: INTRAVENTRICULAR HAEMORRHAGE
     Dosage: 50 UNITS/KG AT 10 ML/MIN
     Route: 042
  4. VITAMIN K [Concomitant]
     Indication: CEREBRAL HAEMORRHAGE
     Dosage: OVER 15 MIN
     Route: 042
  5. VITAMIN K [Concomitant]
     Indication: INTRAVENTRICULAR HAEMORRHAGE
     Dosage: OVER 15 MIN
     Route: 042

REACTIONS (3)
  - Cerebral haemorrhage [Unknown]
  - Intraventricular haemorrhage [Unknown]
  - Embolic cerebral infarction [Unknown]
